FAERS Safety Report 21681205 (Version 1)
Quarter: 2022Q4

REPORT INFORMATION
  Report Type: Report from Study
  Country: US (occurrence: US)
  Receive Date: 20221205
  Receipt Date: 20221205
  Transmission Date: 20230112
  Serious: No
  Sender: FDA-Public Use
  Company Number: US-ABBVIE-4210202

PATIENT
  Sex: Female

DRUGS (3)
  1. SKYRIZI [Suspect]
     Active Substance: RISANKIZUMAB-RZAA
     Indication: Psoriasis
     Dosage: FORM STRENGTH 150 MG, FIRST ADMIN DATE 2022
     Route: 058
  2. SKYRIZI [Suspect]
     Active Substance: RISANKIZUMAB-RZAA
     Dosage: FORM STRENGTH 150 MG
     Route: 058
     Dates: start: 20220805, end: 20220805
  3. SILIQ [Concomitant]
     Active Substance: BRODALUMAB
     Indication: Product used for unknown indication

REACTIONS (2)
  - Psoriasis [Not Recovered/Not Resolved]
  - Therapeutic product effect incomplete [Unknown]
